FAERS Safety Report 21861998 (Version 2)
Quarter: 2023Q1

REPORT INFORMATION
  Report Type: Spontaneous
  Country: CN (occurrence: CN)
  Receive Date: 20230113
  Receipt Date: 20230118
  Transmission Date: 20230417
  Serious: Yes (Other)
  Sender: FDA-Public Use
  Company Number: CN-009507513-2301CHN004788

PATIENT
  Age: 71 Year
  Sex: Male
  Weight: 68 kg

DRUGS (2)
  1. SITAGLIPTIN PHOSPHATE [Suspect]
     Active Substance: SITAGLIPTIN PHOSPHATE
     Indication: Diabetes mellitus
     Dosage: 1 TABLET
     Route: 048
     Dates: start: 2007
  2. NIFEDIPINE [Concomitant]
     Active Substance: NIFEDIPINE
     Indication: Hypertension
     Dosage: 1 TABLET
     Dates: start: 2000

REACTIONS (9)
  - Lung adenocarcinoma [Recovered/Resolved]
  - Lung adenocarcinoma recurrent [Unknown]
  - Malignant neoplasm progression [Unknown]
  - Atrial fibrillation [Unknown]
  - Metastases to adrenals [Unknown]
  - Aortic arteriosclerosis [Unknown]
  - K-ras gene mutation [Unknown]
  - Benign prostatic hyperplasia [Unknown]
  - Pelvic fluid collection [Unknown]

NARRATIVE: CASE EVENT DATE: 20220101
